FAERS Safety Report 9293297 (Version 1)
Quarter: 2013Q2

REPORT INFORMATION
  Report Type: Report from Study
  Country: DE (occurrence: DE)
  Receive Date: 20130516
  Receipt Date: 20130516
  Transmission Date: 20140414
  Serious: Yes (Other)
  Sender: FDA-Public Use
  Company Number: DE-UCBSA-085439

PATIENT
  Age: 51 Year
  Sex: Female

DRUGS (7)
  1. LACOSAMIDE [Suspect]
     Indication: EPILEPSY
     Dosage: DAILY DOSE: 200 MG
  2. LACOSAMIDE [Suspect]
     Indication: EPILEPSY
     Dosage: DAILY DOSE: 50 MG
     Dates: start: 201207
  3. LEVETIRACETAM [Concomitant]
     Indication: EPILEPSY
     Dosage: DAILY DOSE: 1000 MG
  4. LEVETIRACETAM [Concomitant]
     Indication: EPILEPSY
     Dosage: DAILY DOSE: 2000 MG
  5. CARBAMAZEPINE [Concomitant]
     Indication: EPILEPSY
     Dosage: DAILY DOSE: 1200 MG
  6. LAMOTRIGINE [Concomitant]
     Indication: EPILEPSY
  7. OXCARBAZEPINE [Concomitant]
     Indication: EPILEPSY
     Dosage: DAILY DOSE: 1200 MG

REACTIONS (1)
  - Partial seizures [Recovered/Resolved]
